FAERS Safety Report 16412787 (Version 6)
Quarter: 2020Q4

REPORT INFORMATION
  Report Type: Spontaneous
  Country: US (occurrence: US)
  Receive Date: 20190611
  Receipt Date: 20201118
  Transmission Date: 20210113
  Serious: Yes (Hospitalization)
  Sender: FDA-Public Use
  Company Number: US-B.I. PHARMACEUTICALS,INC./RIDGEFIELD-2019-BI-025850

PATIENT
  Age: 63 Year
  Weight: 95.25 kg

DRUGS (21)
  1. PRAVACHOL [Concomitant]
     Active Substance: PRAVASTATIN SODIUM
     Indication: PRODUCT USED FOR UNKNOWN INDICATION
     Dosage: TAKE 1 TAB BY MOUTH NIGHTLY
     Route: 048
     Dates: start: 20131013, end: 20160817
  2. LISINOPRIL. [Concomitant]
     Active Substance: LISINOPRIL
     Indication: PRODUCT USED FOR UNKNOWN INDICATION
     Dates: start: 20131013, end: 20160817
  3. PLAVIX [Concomitant]
     Active Substance: CLOPIDOGREL BISULFATE
     Indication: PRODUCT USED FOR UNKNOWN INDICATION
     Dosage: TAKE 1 TAB BY MOUTH DAILY
     Route: 048
  4. NICODERM CQ [Concomitant]
     Active Substance: NICOTINE
     Indication: PRODUCT USED FOR UNKNOWN INDICATION
     Dosage: PLACE 1 PATCH ONTO THE SKIN DAILY
     Route: 062
  5. NITROSTAT [Concomitant]
     Active Substance: NITROGLYCERIN
     Indication: CHEST PAIN
     Dosage: PLACE 1 TAB UNDER THE TONGUE EVERY 5 (FIVE) MINUTES AS NEEDED FOR CHEST PAIN FREQUENCY:
     Route: 060
  6. POTASSIUM CHLORIDE. [Concomitant]
     Active Substance: POTASSIUM CHLORIDE
     Indication: BLOOD POTASSIUM DECREASED
     Dosage: TAKE 20 MEQ BY MOUTH DAILY
     Route: 048
     Dates: start: 20160418, end: 20160524
  7. FLEXERIL [Concomitant]
     Active Substance: CYCLOBENZAPRINE HYDROCHLORIDE
     Indication: MUSCLE SPASMS
     Dosage: TAKE 10 MG BY MOUTH 3 (THREE) TIMES DAILY AS NEEDED FOR MUSCLE SPASMS FREQUENCY:
     Route: 048
     Dates: start: 20151028, end: 20160817
  8. NEURONTIN [Concomitant]
     Active Substance: GABAPENTIN
     Indication: PRODUCT USED FOR UNKNOWN INDICATION
     Dosage: TAKE 800 MG BY MOUTH 4 (FOUR) TIMES DAILY
     Route: 048
     Dates: start: 20131209, end: 20160817
  9. ZANAFLEX [Concomitant]
     Active Substance: TIZANIDINE HYDROCHLORIDE
     Indication: PRODUCT USED FOR UNKNOWN INDICATION
     Dosage: TAKE 4 MG BY MOUTH AT BEDTIME DAILY
     Route: 048
     Dates: start: 20131213, end: 20160817
  10. AMARYL [Concomitant]
     Active Substance: GLIMEPIRIDE
     Indication: DIABETES MELLITUS
     Dosage: TAKE 2 MG BY MOUTH EVERY MORNING
     Route: 048
     Dates: start: 20160512, end: 20160524
  11. OXYCODONE [Concomitant]
     Active Substance: OXYCODONE
     Indication: PRODUCT USED FOR UNKNOWN INDICATION
     Dosage: TAKE 20 MG BY MOUTH EVERY 8 (EIGHT) HOURS
     Route: 048
     Dates: start: 2010, end: 20160817
  12. PRADAXA [Suspect]
     Active Substance: DABIGATRAN ETEXILATE MESYLATE
     Indication: ATRIAL FIBRILLATION
     Dosage: TAKE 1 CAP BY MOUTH EVERY 12 (TWELVE) HOURS
     Route: 048
     Dates: start: 20160528, end: 20160609
  13. JARDIANCE [Concomitant]
     Active Substance: EMPAGLIFLOZIN
     Indication: PRODUCT USED FOR UNKNOWN INDICATION
     Dosage: TAKE 10 MG BY MOUTH DAILY
     Route: 048
     Dates: start: 20150827, end: 20160817
  14. PROSCAR [Concomitant]
     Active Substance: FINASTERIDE
     Indication: PRODUCT USED FOR UNKNOWN INDICATION
     Dosage: TAKE 1 TAB BY MOUTH DAILY
     Route: 048
  15. LASIX [Concomitant]
     Active Substance: FUROSEMIDE
     Indication: HYPERTENSION
     Dosage: TAKE 20 MG BY MOUTH DAILY
     Route: 048
     Dates: start: 20160504, end: 20160524
  16. ASPIRIN [ACETYLSALICYLIC ACID] [Concomitant]
     Active Substance: ASPIRIN
     Indication: PRODUCT USED FOR UNKNOWN INDICATION
     Dosage: TAKE 81 MG BY MOUTH DAILY
     Route: 048
  17. LASIX [Concomitant]
     Active Substance: FUROSEMIDE
     Indication: OEDEMA
  18. LOPRESSOR [Concomitant]
     Active Substance: METOPROLOL TARTRATE
     Indication: PRODUCT USED FOR UNKNOWN INDICATION
     Dosage: TAKE 1 TAB BY MOUTH 2 (TWO) TIMES DAILY
     Route: 048
     Dates: start: 2000, end: 20160817
  19. FLOMAX [Concomitant]
     Active Substance: TAMSULOSIN HYDROCHLORIDE
     Indication: PRODUCT USED FOR UNKNOWN INDICATION
     Dosage: TAKE 2 CAPS BY MOUTH DAILY WITH BREAKFAST?PATIENT : TAKE 0.4 MG BY MOUTH 2 (TWO) TIMES DAILY
     Route: 048
     Dates: start: 20131108, end: 20160817
  20. GLUCOPHAGE [Concomitant]
     Active Substance: METFORMIN HYDROCHLORIDE
     Indication: TYPE 2 DIABETES MELLITUS
     Dosage: TAKE 1 TAB BY MOUTH 2 (TWO) TIMES DAILY
     Route: 048
     Dates: start: 20070101, end: 20160817
  21. MS CONTIN [Concomitant]
     Active Substance: MORPHINE SULFATE
     Indication: PRODUCT USED FOR UNKNOWN INDICATION
     Dosage: CR TABLET?TAKE 60 MG BY MOUTH EVERY 8 (EIGHT) HOURS
     Route: 048
     Dates: start: 20150729, end: 20160817

REACTIONS (1)
  - Gastrointestinal haemorrhage [Unknown]

NARRATIVE: CASE EVENT DATE: 20160609
